FAERS Safety Report 10144428 (Version 1)
Quarter: 2014Q2

REPORT INFORMATION
  Report Type: Spontaneous
  Country: JP (occurrence: JP)
  Receive Date: 20140430
  Receipt Date: 20140430
  Transmission Date: 20141212
  Serious: Yes (Other)
  Sender: FDA-Public Use
  Company Number: JP-MYLANLABS-2014S1009356

PATIENT
  Age: 57 Year
  Sex: Male

DRUGS (3)
  1. FLUVOXAMINE [Suspect]
     Dosage: 300 MG/D
     Route: 065
  2. DULOXETINE [Suspect]
     Dosage: 30 MG/D, THEN 40 MG/D
     Route: 065
  3. DULOXETINE [Suspect]
     Dosage: 40 MG/D
     Route: 065

REACTIONS (2)
  - Arteriospasm coronary [Recovered/Resolved]
  - Serotonin syndrome [Recovered/Resolved]
